FAERS Safety Report 8864229 (Version 1)
Quarter: 2012Q4

REPORT INFORMATION
  Report Type: 
  Country: US (occurrence: US)
  Receive Date: 20121024
  Receipt Date: 20121024
  Transmission Date: 20130627
  Serious: No
  Sender: FDA-Public Use
  Company Number: US-AMGEN-USASP2011066598

PATIENT
  Age: 51 Year
  Sex: Female

DRUGS (5)
  1. ENBREL [Suspect]
     Indication: PRODUCT USED FOR UNKNOWN INDICATION
     Dosage: 50 mg, UNK
     Route: 058
  2. PREDNISONE [Concomitant]
     Dosage: 1 mg, UNK
     Route: 048
  3. ABREVA [Concomitant]
     Dosage: 10 %, UNK
     Route: 061
  4. IBUPROFEN [Concomitant]
     Dosage: 200 mg, UNK
     Route: 048
  5. VITAMIN D /00107901/ [Concomitant]
     Dosage: 1000 IU, UNK
     Route: 048

REACTIONS (9)
  - Gingival pain [Unknown]
  - Mucosal inflammation [Unknown]
  - Petechiae [Unknown]
  - Oral herpes [Unknown]
  - Onychomycosis [Not Recovered/Not Resolved]
  - Injection site pruritus [Unknown]
  - Injection site reaction [Unknown]
  - Injection site erythema [Unknown]
  - Injection site swelling [Unknown]
